FAERS Safety Report 13825266 (Version 1)
Quarter: 2017Q3

REPORT INFORMATION
  Report Type: Spontaneous
  Country: US (occurrence: US)
  Receive Date: 20170801
  Receipt Date: 20170801
  Transmission Date: 20171127
  Serious: Yes (Hospitalization)
  Sender: FDA-Public Use
  Company Number: None

PATIENT
  Age: 59 Year
  Sex: Male

DRUGS (6)
  1. SYSTANE (HYPROMELLOSE 2910 (4000 MPA.S)) [Concomitant]
     Active Substance: HYPROMELLOSE 2910 (4000 MPA.S)
  2. IMAITNIB 400MG AMGEN [Suspect]
     Active Substance: IMATINIB
     Indication: NON-HODGKIN^S LYMPHOMA
     Route: 048
     Dates: start: 20170203
  3. VENAFAXINE [Concomitant]
  4. VITAMIN B12 [Concomitant]
     Active Substance: CYANOCOBALAMIN
  5. VORICONAZOLE. [Concomitant]
     Active Substance: VORICONAZOLE
  6. GLEEVEC [Concomitant]
     Active Substance: IMATINIB MESYLATE

REACTIONS (2)
  - Cellulitis [None]
  - Alopecia [None]
